FAERS Safety Report 5870766-2 (Version None)
Quarter: 2008Q3

REPORT INFORMATION
  Report Type: 
  Country: None (occurrence: None)
  Receive Date: 20080829
  Receipt Date: 20080710
  Transmission Date: 20090109
  Serious: No
  Sender: FDA-Public Use
  Company Number: ADE# 08-106

PATIENT
  Sex: Female
  Weight: 79.3795 kg

DRUGS (10)
  1. METFORMIN HYDROCHLORIDE [Suspect]
     Indication: DIABETES MELLITUS
     Dosage: 2 TABLETS TWICE DAILY
     Dates: start: 20080706
  2. CLONIDINE [Concomitant]
  3. REGLAN [Concomitant]
  4. LISINOPRIL [Concomitant]
  5. TRICOR [Concomitant]
  6. OMEPRAZOLE [Concomitant]
  7. ZOLOFT [Concomitant]
  8. ATORVASTATIN [Concomitant]
  9. ACTOS [Concomitant]
  10. VITAMIN TAB [Concomitant]

REACTIONS (2)
  - BLOOD GLUCOSE INCREASED [None]
  - THERAPEUTIC RESPONSE UNEXPECTED [None]
